FAERS Safety Report 8792979 (Version 1)
Quarter: 2012Q4

REPORT INFORMATION
  Report Type: 
  Country: BR (occurrence: BR)
  Receive Date: 20120918
  Receipt Date: 20120918
  Transmission Date: 20130627
  Serious: Yes (Other)
  Sender: FDA-Public Use
  Company Number: BR-ROCHE-1110936

PATIENT
  Age: 18 Year
  Sex: Male

DRUGS (1)
  1. ROACUTAN [Suspect]
     Indication: PRODUCT USED FOR UNKNOWN INDICATION
     Route: 065
     Dates: start: 20090603, end: 20100331

REACTIONS (1)
  - Cyst [Unknown]
